FAERS Safety Report 9998849 (Version 1)
Quarter: 2014Q1

REPORT INFORMATION
  Report Type: Spontaneous
  Country: US (occurrence: US)
  Receive Date: 20140312
  Receipt Date: 20140312
  Transmission Date: 20141002
  Serious: No
  Sender: FDA-Public Use
  Company Number: US-BIOGENIDEC-2014BI020805

PATIENT
  Age: 37 Year
  Sex: Female

DRUGS (7)
  1. TECFIDERA [Suspect]
     Indication: PRODUCT USED FOR UNKNOWN INDICATION
     Route: 048
     Dates: start: 20140124, end: 20140130
  2. TECFIDERA [Suspect]
     Indication: PRODUCT USED FOR UNKNOWN INDICATION
     Route: 048
     Dates: start: 20140131
  3. VICODIN [Concomitant]
  4. VITAMIN D [Concomitant]
  5. LUNESTA [Concomitant]
  6. ADVIL PM [Concomitant]
  7. TYLENOL PM [Concomitant]

REACTIONS (1)
  - Fatigue [Not Recovered/Not Resolved]
